FAERS Safety Report 5002046-1 (Version None)
Quarter: 2006Q2

REPORT INFORMATION
  Report Type: 
  Country: None (occurrence: None)
  Receive Date: 20060515
  Receipt Date: 20060302
  Transmission Date: 20061013
  Serious: Yes (Hospitalization)
  Sender: FDA-Public Use
  Company Number: US-MERCK-0603USA00712

PATIENT
  Age: 72 Year
  Sex: Female
  Weight: 36 kg

DRUGS (1)
  1. VIOXX [Suspect]
     Indication: BACK PAIN
     Route: 048
     Dates: start: 20030901, end: 20040901

REACTIONS (2)
  - COLON CANCER [None]
  - TRANSIENT ISCHAEMIC ATTACK [None]
